FAERS Safety Report 11820442 (Version 1)
Quarter: 2015Q4

REPORT INFORMATION
  Report Type: Spontaneous
  Country: US (occurrence: None)
  Receive Date: 20151209
  Receipt Date: 20151209
  Transmission Date: 20160305
  Serious: No
  Sender: FDA-Public Use
  Company Number: None

PATIENT
  Age: 59 Year
  Sex: Female
  Weight: 74.84 kg

DRUGS (12)
  1. EFFEXOR [Concomitant]
     Active Substance: VENLAFAXINE HYDROCHLORIDE
  2. MULIVITAMIN [Concomitant]
  3. FIBER PILL [Concomitant]
  4. HYDROCHLOROTHIAZIDE. [Concomitant]
     Active Substance: HYDROCHLOROTHIAZIDE
  5. VITAMIN C [Concomitant]
     Active Substance: ASCORBIC ACID
  6. CARVEDILOL. [Concomitant]
     Active Substance: CARVEDILOL
  7. FLAXSEED [Concomitant]
     Active Substance: FLAX SEED
  8. LAXATIVE [Concomitant]
     Active Substance: UNSPECIFIED INGREDIENT
  9. VITAMIN B12 [Concomitant]
     Active Substance: CYANOCOBALAMIN
  10. FLUOXETINE [Suspect]
     Active Substance: FLUOXETINE HYDROCHLORIDE
     Indication: DEPRESSION
     Route: 048
     Dates: start: 20150821, end: 20151128
  11. ATORVASTATIN [Concomitant]
     Active Substance: ATORVASTATIN
  12. VITAMIN D [Concomitant]
     Active Substance: CHOLECALCIFEROL

REACTIONS (12)
  - Palpitations [None]
  - Respiratory distress [None]
  - Fatigue [None]
  - Rash [None]
  - Bronchitis [None]
  - Drug ineffective [None]
  - Dysphagia [None]
  - Productive cough [None]
  - Dyspnoea [None]
  - Nasal discomfort [None]
  - Pulmonary congestion [None]
  - Pyrexia [None]

NARRATIVE: CASE EVENT DATE: 20151128
